FAERS Safety Report 6271930-3 (Version None)
Quarter: 2009Q3

REPORT INFORMATION
  Report Type: 
  Country: None (occurrence: None)
  Receive Date: 20090717
  Receipt Date: 20090707
  Transmission Date: 20100115
  Serious: Yes (Other)
  Sender: FDA-Public Use
  Company Number: US-PFIZER INC-2009223919

PATIENT
  Sex: Female
  Weight: 82 kg

DRUGS (14)
  1. CELEBREX [Suspect]
     Indication: ARTHRITIS
     Dosage: 200 MG, 1X/DAY
     Route: 048
     Dates: start: 20090501, end: 20090601
  2. CHLORTHALIDONE [Concomitant]
     Dosage: 100 MG, UNK
  3. POTASSIUM CHLORIDE [Concomitant]
     Dosage: 60 MEQ, UNK
  4. OMEPRAZOLE [Concomitant]
     Dosage: 20 MG, UNK
  5. RANITIDINE [Concomitant]
     Dosage: 300 MG, UNK
  6. SIMVASTATIN [Concomitant]
     Dosage: 20 MG, UNK
  7. CYMBALTA [Concomitant]
     Dosage: 60 MG, UNK
  8. FOLIC ACID [Concomitant]
     Dosage: 1 MG, UNK
  9. REMERON [Concomitant]
     Dosage: 15 MG, UNK
  10. LAMICTAL [Concomitant]
     Dosage: 50 MG, UNK
  11. AMBIEN [Concomitant]
     Dosage: 10 MG, UNK
  12. LISINOPRIL [Concomitant]
     Dosage: 20 MG, UNK
  13. SPIRIVA [Concomitant]
     Dosage: UNK
  14. LAMOTRIGINE [Concomitant]
     Dosage: 50 MG, UNK

REACTIONS (5)
  - ANXIETY [None]
  - BLOOD THYROID STIMULATING HORMONE ABNORMAL [None]
  - BLOOD URINE PRESENT [None]
  - HYPERTENSION [None]
  - TREMOR [None]
